FAERS Safety Report 8974068 (Version 2)
Quarter: 2013Q2

REPORT INFORMATION
  Report Type: Spontaneous
  Country: US (occurrence: US)
  Receive Date: 20121211
  Receipt Date: 20130521
  Transmission Date: 20140414
  Serious: Yes (Other)
  Sender: FDA-Public Use
  Company Number: US-PFIZER INC-2012305924

PATIENT
  Age: 35 Year
  Sex: Female
  Weight: 47 kg

DRUGS (7)
  1. TORISEL [Suspect]
     Indication: RENAL CELL CARCINOMA
     Dosage: 25 MG IN 250 ML SALINE SOLUTION, UNK
     Route: 042
     Dates: start: 20121127, end: 20121127
  2. BISACODYL [Concomitant]
     Indication: CONSTIPATION
     Dosage: UNK
  3. LOVENOX [Concomitant]
     Dosage: UNK
  4. FENTANYL [Concomitant]
     Dosage: UNK
  5. GABAPENTIN [Concomitant]
     Dosage: UNK
  6. ONDANSETRON [Concomitant]
     Dosage: UNK
  7. OXYCODONE [Concomitant]
     Dosage: UNK

REACTIONS (4)
  - Poor quality drug administered [Unknown]
  - Chest discomfort [Recovered/Resolved]
  - Hypersensitivity [Recovered/Resolved]
  - Flushing [Recovered/Resolved]
